FAERS Safety Report 7824189-7 (Version None)
Quarter: 2011Q4

REPORT INFORMATION
  Report Type: 
  Country: None (occurrence: None)
  Receive Date: 20111019
  Receipt Date: 20111015
  Transmission Date: 20120403
  Serious: Yes (Other)
  Sender: FDA-Public Use
  Company Number: US-PFIZER INC-2011247027

PATIENT
  Sex: Male
  Weight: 88.435 kg

DRUGS (4)
  1. ZYVOX [Suspect]
     Indication: BACTERIAL INFECTION
     Dosage: 600 MG, 2X/DAY
     Route: 048
     Dates: start: 20110929
  2. VANCOMYCIN [Concomitant]
     Indication: BACTERIAL INFECTION
     Dosage: UNK
  3. LISINOPRIL [Concomitant]
     Indication: HYPERTENSION
     Dosage: UNK
  4. DIOVAN [Concomitant]
     Indication: HYPERTENSION
     Dosage: 320 MG, DAILY

REACTIONS (2)
  - FLATULENCE [None]
  - BACTERIAL INFECTION [None]
